FAERS Safety Report 10228386 (Version 1)
Quarter: 2014Q2

REPORT INFORMATION
  Report Type: Spontaneous
  Country: US (occurrence: None)
  Receive Date: 20140505
  Receipt Date: 20140505
  Transmission Date: 20141212
  Serious: No
  Sender: FDA-Public Use
  Company Number: US-015102

PATIENT
  Age: 62 Year
  Sex: Male
  Weight: 76.2 kg

DRUGS (3)
  1. PICO-SALAX (NOT SPECIFIED) [Suspect]
     Indication: BOWEL PREPARATION
     Dosage: 4:00 FIRST PACKET; 10:00 PM SECOND PACKET
     Route: 048
     Dates: start: 20140323, end: 20140323
  2. BABY ASPIRIN [Concomitant]
  3. VITAMIN B [Concomitant]

REACTIONS (1)
  - Drug ineffective [None]
